FAERS Safety Report 8111636-9 (Version None)
Quarter: 2012Q1

REPORT INFORMATION
  Report Type: 
  Country: None (occurrence: None)
  Receive Date: 20120202
  Receipt Date: 20120202
  Transmission Date: 20120608
  Serious: Yes (Other)
  Sender: FDA-Public Use
  Company Number: None

PATIENT
  Sex: Male
  Weight: 58 kg

DRUGS (13)
  1. LOPERAMIDE HCL [Concomitant]
  2. POLYETHYLENE GLYCOL [Concomitant]
  3. LORAZEPAM [Concomitant]
  4. OMEPRAZOLE [Concomitant]
  5. IRINOTECAN HCL [Suspect]
     Indication: ADENOCARCINOMA
     Dosage: 140 MG/M2
     Dates: start: 20120123
  6. FLUOXETINE [Concomitant]
  7. NEUPOGEN [Concomitant]
  8. LEUCOVORIN CALCIUM [Suspect]
     Indication: ADENOCARCINOMA PANCREAS
     Dosage: 400 MG/M2
     Dates: start: 20120123
  9. FLUOROURACIL [Suspect]
     Indication: ADENOCARCINOMA PANCREAS
     Dosage: 2200MG/M2
     Dates: start: 20120123, end: 20120125
  10. DEXAMETHASONE [Concomitant]
  11. ONDANSETRON [Concomitant]
  12. OXYCODONE HCL [Concomitant]
  13. OXALIPLATIN [Suspect]
     Indication: ADENOCARCINOMA PANCREAS
     Dosage: 70 MG/M2
     Dates: start: 20120123

REACTIONS (9)
  - PARAESTHESIA [None]
  - CHEST PAIN [None]
  - TROPONIN INCREASED [None]
  - LEUKOCYTOSIS [None]
  - OESOPHAGEAL SPASM [None]
  - BLOOD POTASSIUM DECREASED [None]
  - OESOPHAGITIS [None]
  - HYPERHIDROSIS [None]
  - DYSPNOEA [None]
